FAERS Safety Report 4842373-1 (Version None)
Quarter: 2005Q4

REPORT INFORMATION
  Report Type: 
  Country: None (occurrence: None)
  Receive Date: 20051125
  Receipt Date: 20051114
  Transmission Date: 20060501
  Serious: Yes (Death, Hospitalization, Other)
  Sender: FDA-Public Use
  Company Number: FR-2005-024109

PATIENT
  Age: 76 Year
  Sex: Female
  Weight: 84 kg

DRUGS (4)
  1. SOTALOL HCL [Suspect]
     Dosage: 80 MG 1X/DAY, ORAL
     Route: 048
     Dates: start: 20050415, end: 20051012
  2. KENZEN (CANDESARTAN CILEXETIL) [Suspect]
     Dosage: 4 MG, 1X/DAY
     Dates: start: 20050415, end: 20051012
  3. DOLIPRANE (PARACETAMOL) [Suspect]
     Dosage: 4 G, 1X/DAY
     Dates: start: 20050815, end: 20051012
  4. ACECLOFENAC (ACECLOFENAC) [Suspect]
     Dosage: 100 MG, 2X/DAY
     Dates: start: 20050815, end: 20051012

REACTIONS (4)
  - CHOLESTASIS [None]
  - HEPATIC FAILURE [None]
  - LYMPHADENOPATHY [None]
  - NEUTROPENIA [None]
